FAERS Safety Report 8764596 (Version 1)
Quarter: 2012Q4

REPORT INFORMATION
  Report Type: 
  Country: US (occurrence: US)
  Receive Date: 20120831
  Receipt Date: 20120831
  Transmission Date: 20130627
  Serious: No
  Sender: FDA-Public Use
  Company Number: US-B.I. PHARMACEUTICALS,INC./RIDGEFIELD-2012-BP-17013BP

PATIENT
  Age: 28 Year
  Sex: Male

DRUGS (2)
  1. TRADJENTA [Suspect]
     Indication: TYPE 2 DIABETES MELLITUS
     Dosage: 5 mg
     Route: 048
     Dates: start: 20120412
  2. METFORMIN [Concomitant]

REACTIONS (2)
  - Nasopharyngitis [Unknown]
  - Pharyngitis streptococcal [Recovered/Resolved]
